FAERS Safety Report 8317005-0 (Version None)
Quarter: 2012Q2

REPORT INFORMATION
  Report Type: 
  Country: None (occurrence: None)
  Receive Date: 20120425
  Receipt Date: 20120412
  Transmission Date: 20120825
  Serious: Yes (Hospitalization)
  Sender: FDA-Public Use
  Company Number: 2012SP019561

PATIENT
  Age: 34 Year
  Sex: Female
  Weight: 57.5 kg

DRUGS (15)
  1. PIROXICAM [Concomitant]
  2. METOCLOPRAMIDE [Concomitant]
  3. RIBAVIRIN [Suspect]
     Indication: HEPATITIS C
     Dosage: 200 MG;QD;PO
     Route: 048
     Dates: start: 20120105, end: 20120327
  4. LOVAZA [Concomitant]
  5. FLUCONAZOLE [Concomitant]
  6. RIBAVIRIN [Suspect]
     Indication: HEPATITIS C
     Dosage: 1000 MG;QD;PO
     Route: 048
     Dates: start: 20120105, end: 20120327
  7. RIBAVIRIN [Suspect]
     Indication: HEPATITIS C
     Dosage: 30 MG;QD;PO
     Route: 048
     Dates: start: 20120105, end: 20120327
  8. IMPLANON [Concomitant]
  9. IBUPROFEN [Concomitant]
  10. PROCHLORPERAZINE [Concomitant]
  11. LORAZEPAM [Concomitant]
  12. ALBUTEROL [Concomitant]
  13. METAMUCIL-2 [Concomitant]
  14. YASMIN [Concomitant]
  15. PEGINTERFERON ALFA-2A [Suspect]
     Indication: HEPATITIS C
     Dosage: 180 MCG;QW;SC
     Route: 058
     Dates: start: 20120105, end: 20120321

REACTIONS (5)
  - NEUTROPHIL COUNT DECREASED [None]
  - WHITE BLOOD CELL COUNT DECREASED [None]
  - MENINGITIS [None]
  - UPPER RESPIRATORY TRACT INFECTION [None]
  - PLATELET COUNT DECREASED [None]
